FAERS Safety Report 19959184 (Version 2)
Quarter: 2021Q4

REPORT INFORMATION
  Report Type: Spontaneous
  Country: TR (occurrence: TR)
  Receive Date: 20211015
  Receipt Date: 20211207
  Transmission Date: 20220303
  Serious: Yes (Hospitalization)
  Sender: FDA-Public Use
  Company Number: TR-NOVOPROD-854584

PATIENT
  Sex: Male
  Weight: 3.1 kg

DRUGS (2)
  1. LEVEMIR [Suspect]
     Active Substance: INSULIN DETEMIR
     Indication: Gestational diabetes
     Dosage: 3 IU, QD (NIGHT)
     Route: 064
     Dates: start: 20210804, end: 20210823
  2. PROGESTERONE [Concomitant]
     Active Substance: PROGESTERONE
     Indication: Pregnancy
     Dosage: 2 TIMES A DAY
     Route: 064
     Dates: end: 20210823

REACTIONS (2)
  - Respiratory disorder neonatal [Recovered/Resolved]
  - Foetal exposure during pregnancy [Recovered/Resolved]

NARRATIVE: CASE EVENT DATE: 20210804
